FAERS Safety Report 24687876 (Version 1)
Quarter: 2024Q4

REPORT INFORMATION
  Report Type: Spontaneous
  Country: US (occurrence: US)
  Receive Date: 20241202
  Receipt Date: 20241202
  Transmission Date: 20250114
  Serious: No
  Sender: SANOFI AVENTIS
  Company Number: US-SA-2024SA349631

PATIENT
  Sex: Female
  Weight: 31.75 kg

DRUGS (6)
  1. DUPIXENT [Suspect]
     Active Substance: DUPILUMAB
     Indication: Dermatitis atopic
     Dosage: 300 MG, Q4W
     Route: 058
  2. OFLOXACIN [Concomitant]
     Active Substance: OFLOXACIN
     Dosage: UNK
  3. SYMBICORT [Concomitant]
     Active Substance: BUDESONIDE\FORMOTEROL FUMARATE DIHYDRATE
     Dosage: UNK
  4. OLOPATADINE [Concomitant]
     Active Substance: OLOPATADINE
     Dosage: UNK
  5. AMPICILLIN TRIHYDRATE\CLAVULANATE POTASSIUM [Concomitant]
     Active Substance: AMPICILLIN TRIHYDRATE\CLAVULANATE POTASSIUM
     Dosage: UNK
  6. LISDEXAMFETAMINE [Concomitant]
     Active Substance: LISDEXAMFETAMINE
     Dosage: UNK

REACTIONS (2)
  - Rash [Unknown]
  - Incorrect dose administered [Unknown]
